FAERS Safety Report 7371340-1 (Version None)
Quarter: 2011Q1

REPORT INFORMATION
  Report Type: 
  Country: None (occurrence: None)
  Receive Date: 20110324
  Receipt Date: 20100806
  Transmission Date: 20110831
  Serious: Yes (Hospitalization, Other)
  Sender: FDA-Public Use
  Company Number: US-BAYER-200942713NA

PATIENT
  Sex: Female
  Weight: 83.182 kg

DRUGS (5)
  1. LOVENOX [Concomitant]
     Dosage: 120 MG/0.8ML
     Route: 058
  2. COLACE [Concomitant]
     Dosage: 100 MG, UNK
     Route: 048
  3. LORAZEPAM [Concomitant]
     Route: 048
  4. COUMADIN [Concomitant]
     Route: 048
  5. YAZ [Suspect]
     Dosage: UNK UNK, UNK
     Route: 048
     Dates: start: 20060101, end: 20090115

REACTIONS (4)
  - DEEP VEIN THROMBOSIS [None]
  - PULMONARY EMBOLISM [None]
  - PAIN IN EXTREMITY [None]
  - BACK PAIN [None]
